FAERS Safety Report 8509977-6 (Version None)
Quarter: 2012Q3

REPORT INFORMATION
  Report Type: 
  Country: None (occurrence: None)
  Receive Date: 20120713
  Receipt Date: 20120626
  Transmission Date: 20120928
  Serious: No
  Sender: FDA-Public Use
  Company Number: CA-ASTRAZENECA-2008UW27074

PATIENT
  Age: 50 Year
  Sex: Female

DRUGS (4)
  1. CELEBREX [Concomitant]
  2. ZOMIG [Suspect]
     Route: 048
  3. NEXIUM [Suspect]
     Route: 048
  4. TOPROL-XL [Suspect]
     Route: 048

REACTIONS (3)
  - MIGRAINE [None]
  - BREAST CALCIFICATIONS [None]
  - WEIGHT DECREASED [None]
